FAERS Safety Report 8092010-0 (Version None)
Quarter: 2012Q1

REPORT INFORMATION
  Report Type: 
  Country: None (occurrence: None)
  Receive Date: 20120130
  Receipt Date: 20120130
  Transmission Date: 20120608
  Serious: No
  Sender: FDA-Public Use
  Company Number: None

PATIENT
  Sex: Female

DRUGS (1)
  1. COPAXONE [Suspect]
     Dosage: 20MG/ML DAILY SQ
     Route: 058
     Dates: start: 20111004, end: 20120101

REACTIONS (1)
  - LYMPHADENOPATHY [None]
